FAERS Safety Report 24442969 (Version 2)
Quarter: 2024Q4

REPORT INFORMATION
  Report Type: Spontaneous
  Country: US (occurrence: US)
  Receive Date: 20241016
  Receipt Date: 20241017
  Transmission Date: 20250115
  Serious: No
  Sender: ROCHE
  Company Number: US-ROCHE-3572090

PATIENT
  Age: 16 Year
  Sex: Male

DRUGS (2)
  1. HEMLIBRA [Suspect]
     Active Substance: EMICIZUMAB-KXWH
     Indication: Factor VIII deficiency
     Dosage: 105 MG/0.7ML
     Route: 058
     Dates: start: 202007
  2. ELOCTATE [Concomitant]
     Active Substance: EFMOROCTOCOG ALFA
     Dosage: DAY 1,2,4 AND 8 AS NEEDED

REACTIONS (1)
  - Urticaria [Unknown]

NARRATIVE: CASE EVENT DATE: 20240512
